FAERS Safety Report 5305378-2 (Version None)
Quarter: 2007Q2

REPORT INFORMATION
  Report Type: 
  Country: None (occurrence: None)
  Receive Date: 20070424
  Receipt Date: 20070416
  Transmission Date: 20071010
  Serious: Yes (Hospitalization, Other)
  Sender: FDA-Public Use
  Company Number: HQWYE832609JAN07

PATIENT
  Sex: Male

DRUGS (8)
  1. PROTONIX [Suspect]
     Indication: HIATUS HERNIA
     Route: 048
     Dates: start: 20030101, end: 20030101
  2. PROTONIX [Suspect]
     Indication: PAIN
     Route: 048
     Dates: start: 20061201
  3. ATENOLOL [Concomitant]
     Route: 048
  4. PLAVIX [Concomitant]
     Indication: STENT PLACEMENT
     Route: 048
     Dates: start: 20060101
  5. LEVOTHYROXINE SODIUM [Concomitant]
     Dosage: 112 MCG DAILY
     Route: 048
  6. GLUCOTROL [Concomitant]
     Dosage: 5 MG AM AND PRN
     Route: 048
  7. ACETYLSALICYLIC ACID SRT [Concomitant]
     Route: 048
  8. ACTOS [Concomitant]
     Route: 048

REACTIONS (1)
  - COLON CANCER [None]
